FAERS Safety Report 9216888 (Version 3)
Quarter: 2013Q2

REPORT INFORMATION
  Report Type: Spontaneous
  Country: JP (occurrence: JP)
  Receive Date: 20130408
  Receipt Date: 20130506
  Transmission Date: 20140414
  Serious: Yes (Other)
  Sender: FDA-Public Use
  Company Number: JP-PFIZER INC-2013107806

PATIENT
  Age: 64 Year
  Sex: Male

DRUGS (8)
  1. LYRICA [Suspect]
     Indication: POST HERPETIC NEURALGIA
     Dosage: 25 MG, 1X/DAY
     Route: 048
     Dates: start: 20130311, end: 20130322
  2. NORVASC [Suspect]
     Indication: HYPERTENSION
     Dosage: 5 MG, 1X/DAY
     Dates: end: 20130322
  3. OLMETEC [Suspect]
     Indication: HYPERTENSION
     Dosage: 20 MG, 1X/DAY
     Dates: end: 20130322
  4. LASIX [Concomitant]
  5. LANTUS [Concomitant]
  6. ONE-ALPHA [Concomitant]
  7. CALTAN [Concomitant]
  8. CALONAL [Concomitant]

REACTIONS (1)
  - Loss of consciousness [Recovered/Resolved]
